FAERS Safety Report 12848489 (Version 1)
Quarter: 2016Q4

REPORT INFORMATION
  Report Type: Spontaneous
  Country: US (occurrence: US)
  Receive Date: 20161014
  Receipt Date: 20161014
  Transmission Date: 20170207
  Serious: No
  Sender: FDA-Public Use
  Company Number: US-JNJFOC-20160816264

PATIENT
  Age: 53 Year
  Sex: Female
  Weight: 86.64 kg

DRUGS (2)
  1. TYLENOL 8 HR ARTHRITIS PAIN [Suspect]
     Active Substance: ACETAMINOPHEN
     Route: 048
  2. TYLENOL 8 HR ARTHRITIS PAIN [Suspect]
     Active Substance: ACETAMINOPHEN
     Indication: PROCEDURAL PAIN
     Dosage: 1 TABLET; 1 HOUR APART, THEN 24 HOURS APART
     Route: 048
     Dates: start: 20160815, end: 20160816

REACTIONS (6)
  - Lethargy [Recovered/Resolved]
  - Product use issue [Recovered/Resolved]
  - Feeling abnormal [Recovered/Resolved]
  - Off label use [Recovered/Resolved]
  - Somnolence [Recovered/Resolved]
  - Feeling drunk [Recovered/Resolved]

NARRATIVE: CASE EVENT DATE: 20160815
